FAERS Safety Report 13589323 (Version 1)
Quarter: 2017Q2

REPORT INFORMATION
  Report Type: Spontaneous
  Country: US (occurrence: US)
  Receive Date: 20170526
  Receipt Date: 20170526
  Transmission Date: 20170830
  Serious: No
  Sender: FDA-Public Use
  Company Number: None

PATIENT
  Age: 55 Year
  Sex: Female

DRUGS (1)
  1. SUTENT [Suspect]
     Active Substance: SUNITINIB MALATE
     Indication: GASTROINTESTINAL STROMAL TUMOUR
     Dosage: 37.5MG DAILY FOR 4 WEEKS ON 2 WEEKS OFF BY MOUTH
     Route: 048
     Dates: start: 20170303

REACTIONS (3)
  - Nausea [None]
  - Vomiting [None]
  - Hypertension [None]

NARRATIVE: CASE EVENT DATE: 20170430
